FAERS Safety Report 4619129-8 (Version None)
Quarter: 2005Q1

REPORT INFORMATION
  Report Type: 
  Country: None (occurrence: None)
  Receive Date: 20050325
  Receipt Date: 20050307
  Transmission Date: 20050727
  Serious: Yes (Hospitalization)
  Sender: FDA-Public Use
  Company Number: FR-SANOFI-SYNTHELABO-F01200500383

PATIENT
  Sex: Female
  Weight: 50 kg

DRUGS (2)
  1. OXALIPLATIN [Suspect]
     Indication: RECTAL CANCER
     Route: 042
     Dates: start: 20041221, end: 20041221
  2. CAPECITABINE [Suspect]
     Dosage: 825 MG/M2 TWICE DAILY FOR 5 DAYS OF WEEKS 1 TO 5
     Route: 048
     Dates: start: 20041221, end: 20041224

REACTIONS (5)
  - ANASTOMOTIC LEAK [None]
  - COLITIS [None]
  - FISTULA [None]
  - PELVIC ABSCESS [None]
  - PERITONITIS [None]
